FAERS Safety Report 10669763 (Version 1)
Quarter: 2014Q4

REPORT INFORMATION
  Report Type: Spontaneous
  Country: US (occurrence: US)
  Receive Date: 20141222
  Receipt Date: 20141222
  Transmission Date: 20150529
  Serious: Yes (Hospitalization)
  Sender: FDA-Public Use
  Company Number: US-GILEAD-2014-0128487

PATIENT
  Age: 80 Year
  Sex: Female

DRUGS (14)
  1. SYNTHROID [Concomitant]
     Active Substance: LEVOTHYROXINE SODIUM
  2. PLAQUENIL [Concomitant]
     Active Substance: HYDROXYCHLOROQUINE SULFATE
  3. VOLTAREN [Concomitant]
     Active Substance: DICLOFENAC SODIUM
  4. TOPROL XL [Concomitant]
     Active Substance: METOPROLOL SUCCINATE
  5. PREDNISONE. [Concomitant]
     Active Substance: PREDNISONE
  6. ASPIRIN                            /00002701/ [Concomitant]
     Active Substance: ASPIRIN
  7. LIPITOR [Concomitant]
     Active Substance: ATORVASTATIN CALCIUM
  8. LETAIRIS [Suspect]
     Active Substance: AMBRISENTAN
     Indication: PULMONARY ARTERIAL HYPERTENSION
     Dosage: 10 MG, QD
     Route: 065
     Dates: start: 20140319
  9. FOLIC ACID. [Concomitant]
     Active Substance: FOLIC ACID
  10. DIGOXIN. [Concomitant]
     Active Substance: DIGOXIN
  11. AFRIN [Concomitant]
     Active Substance: OXYMETAZOLINE
  12. LASIX [Concomitant]
     Active Substance: FUROSEMIDE
  13. COLACE [Concomitant]
     Active Substance: DOCUSATE SODIUM
  14. ELIQUIS [Concomitant]
     Active Substance: APIXABAN

REACTIONS (2)
  - Dyspnoea [Unknown]
  - Nasal congestion [Unknown]

NARRATIVE: CASE EVENT DATE: 20141206
